FAERS Safety Report 8544177-5 (Version None)
Quarter: 2012Q3

REPORT INFORMATION
  Report Type: 
  Country: None (occurrence: None)
  Receive Date: 20120727
  Receipt Date: 20120719
  Transmission Date: 20120928
  Serious: Yes (Hospitalization)
  Sender: FDA-Public Use
  Company Number: US-SANOFI-AVENTIS-2012SA051755

PATIENT
  Age: 56 Year
  Sex: Female

DRUGS (5)
  1. DOCETAXEL [Suspect]
     Indication: OVARIAN EPITHELIAL CANCER
     Dosage: CYCLE=21 DAYS (CYCLE 1-6)
     Route: 065
     Dates: start: 20110613
  2. BEVACIZUMAB [Suspect]
     Indication: OVARIAN EPITHELIAL CANCER
     Dosage: CYCLE=21 DAYS (CYCLE 1-6)
     Route: 065
     Dates: start: 20110613
  3. BEVACIZUMAB [Suspect]
     Dosage: CYCLE=21 DAYS (CYCLE 1-6)
     Route: 065
     Dates: start: 20120312
  4. PACLITAXEL [Suspect]
     Indication: OVARIAN EPITHELIAL CANCER
     Dosage: CYCLE=21 DAYS (CYCLE 1-6), OVER 3 HOURS DAY 1
     Route: 042
     Dates: start: 20110613
  5. CARBOPLATIN [Suspect]
     Indication: OVARIAN EPITHELIAL CANCER
     Dosage: CYCLE=21 DAYS (CYCLE 1-6), AUC= 6 ON DAY 1
     Route: 042
     Dates: start: 20110613

REACTIONS (5)
  - DEHYDRATION [None]
  - WOUND COMPLICATION [None]
  - ABDOMINAL PAIN [None]
  - NAUSEA [None]
  - VOMITING [None]
